FAERS Safety Report 7055632-1 (Version None)
Quarter: 2010Q4

REPORT INFORMATION
  Report Type: 
  Country: None (occurrence: None)
  Receive Date: 20101021
  Receipt Date: 20101013
  Transmission Date: 20110411
  Serious: Yes (Other)
  Sender: FDA-Public Use
  Company Number: US-ROXANE LABORATORIES, INC.-2010-RO-01357RO

PATIENT
  Age: 54 Year
  Sex: Female

DRUGS (9)
  1. TOPIRAMATE [Suspect]
     Indication: HEADACHE
     Dosage: 25 MG
  2. TOPIRAMATE [Suspect]
     Dosage: 125 MG
  3. PROPRANOLOL [Suspect]
     Indication: HEADACHE
     Dosage: 320 MG
  4. SUMATRIPTAN SUCCINATE [Suspect]
     Indication: HEADACHE
  5. BUTALBITAL [Suspect]
     Indication: HEADACHE
  6. LISINOPRIL [Suspect]
  7. GABAPENTIN [Suspect]
     Indication: SLEEP DISORDER
  8. TOPAMAX [Suspect]
     Indication: HEADACHE
     Dosage: 25 MG
  9. TOPAMAX [Suspect]
     Dosage: 125 MG

REACTIONS (1)
  - BURNING MOUTH SYNDROME [None]
